FAERS Safety Report 8286879-4 (Version None)
Quarter: 2012Q2

REPORT INFORMATION
  Report Type: 
  Country: None (occurrence: None)
  Receive Date: 20120416
  Receipt Date: 20120412
  Transmission Date: 20120825
  Serious: Yes (Death, Hospitalization)
  Sender: FDA-Public Use
  Company Number: IT-AMGEN-ITACT2012008963

PATIENT
  Age: 67 Year
  Sex: Male
  Weight: 98 kg

DRUGS (18)
  1. LEUCOVORIN CALCIUM [Concomitant]
     Dosage: 440 MG, UNK
     Dates: start: 20110307, end: 20110817
  2. FRAXIPARIN [Concomitant]
     Indication: EMBOLISM
     Dosage: 0.6 ML, UNK
     Route: 058
     Dates: start: 20070615
  3. MAGNESIUM PIDOLATE [Concomitant]
     Indication: HYPOMAGNESAEMIA
     Dosage: 2.25 G, UNK
     Route: 048
     Dates: start: 20110418
  4. MORPHINE [Concomitant]
     Indication: PAIN
     Dosage: 3 MG, UNK
     Route: 042
     Dates: start: 20110722
  5. DOXICYCLINE [Concomitant]
     Indication: RASH
     Dosage: 100 MG, UNK
     Route: 048
     Dates: start: 20110321
  6. PANITUMUMAB [Suspect]
     Indication: COLORECTAL CANCER METASTATIC
     Dosage: 516 MG, UNK
     Dates: start: 20110307, end: 20111010
  7. OXALIPLATIN [Concomitant]
     Dosage: 185 MG, UNK
     Dates: start: 20110307, end: 20110817
  8. NEBIVOLOL [Concomitant]
     Indication: HYPERTENSION
     Dosage: 2.5 MG, UNK
     Route: 048
     Dates: start: 20070615
  9. VITAMIN K1 [Concomitant]
     Indication: RASH
  10. ACETAMINOPHEN AND CODEINE PHOSPHATE [Concomitant]
     Indication: PAIN
     Dosage: UNK UNK, UNK
     Route: 048
     Dates: start: 20110509
  11. OXYCONTIN [Concomitant]
     Indication: PAIN
     Dosage: 20 MG, UNK
     Route: 048
     Dates: start: 20110722
  12. VITAMIN K1 [Concomitant]
     Indication: PARONYCHIA
     Dosage: 1 UNK, UNK
     Route: 061
     Dates: start: 20110418
  13. DOXAZOSIN MESYLATE [Concomitant]
     Indication: HYPERTENSION
     Dosage: 2 MG, UNK
     Route: 048
     Dates: start: 20070615
  14. IBRUPROFEN [Concomitant]
     Indication: PAIN
     Dosage: 600 MG, UNK
     Route: 048
     Dates: start: 20110715
  15. PANTOPRAZOLE SODIUM [Concomitant]
     Indication: PROPHYLAXIS
     Dosage: 20 MG, UNK
     Route: 048
     Dates: start: 20110722
  16. CETIRIZINE HCL [Concomitant]
     Indication: RASH
     Dosage: 10 MG, UNK
     Route: 048
     Dates: start: 20110321
  17. FLUOROURACIL [Concomitant]
     Dosage: UNK
     Dates: start: 20110307, end: 20110819
  18. DIAZEPAM [Concomitant]
     Indication: ANXIETY
     Dosage: UNK UNK, UNK
     Route: 048
     Dates: start: 20110722

REACTIONS (11)
  - BLOOD BILIRUBIN INCREASED [None]
  - RESPIRATORY FAILURE [None]
  - BLOOD ALKALINE PHOSPHATASE INCREASED [None]
  - BLOOD CALCIUM DECREASED [None]
  - RED BLOOD CELL COUNT DECREASED [None]
  - INTERSTITIAL LUNG DISEASE [None]
  - BLOOD UREA INCREASED [None]
  - PLATELET COUNT DECREASED [None]
  - BLOOD ALBUMIN DECREASED [None]
  - HAEMOGLOBIN DECREASED [None]
  - HAEMATOCRIT DECREASED [None]
